FAERS Safety Report 26060819 (Version 1)
Quarter: 2025Q4

REPORT INFORMATION
  Report Type: Spontaneous
  Country: GB (occurrence: GB)
  Receive Date: 20251118
  Receipt Date: 20251118
  Transmission Date: 20260117
  Serious: Yes (Hospitalization, Other)
  Sender: BRACCO
  Company Number: None

PATIENT
  Age: 82 Year
  Sex: Male

DRUGS (3)
  1. SULFUR HEXAFLUORIDE [Suspect]
     Active Substance: SULFUR HEXAFLUORIDE
     Indication: Contrast echocardiogram
     Dosage: UNK, SINGLE
     Route: 042
     Dates: start: 20251112, end: 20251112
  2. SULFUR HEXAFLUORIDE [Suspect]
     Active Substance: SULFUR HEXAFLUORIDE
     Indication: Contrast echocardiogram
     Dosage: UNK, SINGLE
     Route: 042
     Dates: start: 20251112, end: 20251112
  3. SULFUR HEXAFLUORIDE [Suspect]
     Active Substance: SULFUR HEXAFLUORIDE
     Indication: Contrast echocardiogram
     Dosage: UNK, SINGLE
     Route: 042
     Dates: start: 20251112, end: 20251112

REACTIONS (2)
  - Paraesthesia [Recovered/Resolved]
  - Blood pressure decreased [Recovered/Resolved]

NARRATIVE: CASE EVENT DATE: 20251112
